FAERS Safety Report 11624352 (Version 1)
Quarter: 2015Q4

REPORT INFORMATION
  Report Type: Spontaneous
  Country: IT (occurrence: IT)
  Receive Date: 20151013
  Receipt Date: 20151013
  Transmission Date: 20160304
  Serious: Yes (Hospitalization)
  Sender: FDA-Public Use
  Company Number: IT-ELI_LILLY_AND_COMPANY-IT201510001490

PATIENT
  Age: 71 Year
  Sex: Female
  Weight: 60 kg

DRUGS (6)
  1. CYMBALTA [Suspect]
     Active Substance: DULOXETINE HYDROCHLORIDE
     Indication: VASCULAR PARKINSONISM
     Dosage: 30 MG, QD
     Route: 048
     Dates: start: 20150822, end: 20150822
  2. METOPROLOL [Concomitant]
     Active Substance: METOPROLOL
     Indication: HYPERTENSION
     Dosage: 100 MG, UNK
  3. CARDURA [Concomitant]
     Active Substance: DOXAZOSIN MESYLATE
     Indication: HYPERTENSION
  4. MANTADAN [Interacting]
     Active Substance: AMANTADINE HYDROCHLORIDE
     Indication: VASCULAR PARKINSONISM
     Dosage: 100 MG, UNK
     Dates: start: 20150822, end: 20150822
  5. SINEMET [Interacting]
     Active Substance: CARBIDOPA\LEVODOPA
     Indication: TREMOR
     Dosage: 125 MG, QD
     Route: 048
     Dates: start: 20150822, end: 20150822
  6. NORVASC [Concomitant]
     Active Substance: AMLODIPINE BESYLATE
     Indication: HYPERTENSION
     Dosage: 10 MG, UNK

REACTIONS (7)
  - Fatigue [Recovered/Resolved with Sequelae]
  - Drug interaction [Recovered/Resolved with Sequelae]
  - Illusion [Recovered/Resolved with Sequelae]
  - Off label use [Recovered/Resolved]
  - Hypertensive crisis [Recovered/Resolved with Sequelae]
  - Nausea [Recovered/Resolved with Sequelae]
  - Condition aggravated [Recovered/Resolved with Sequelae]

NARRATIVE: CASE EVENT DATE: 20150822
